FAERS Safety Report 9186095 (Version 3)
Quarter: 2013Q2

REPORT INFORMATION
  Report Type: Spontaneous
  Country: US (occurrence: US)
  Receive Date: 20130325
  Receipt Date: 20130626
  Transmission Date: 20140414
  Serious: Yes (Hospitalization, Congenital Anomaly)
  Sender: FDA-Public Use
  Company Number: US-GLAXOSMITHKLINE-A0662884A

PATIENT
  Age: 0 Year
  Sex: Female
  Weight: 4.1 kg

DRUGS (3)
  1. PAXIL [Suspect]
     Indication: DEPRESSION
     Dosage: 20MG PER DAY
     Route: 064
     Dates: start: 1999, end: 2003
  2. PRENATAL VITAMINS [Concomitant]
  3. TYLENOL [Concomitant]
     Indication: ABDOMINAL PAIN
     Dates: start: 200208

REACTIONS (10)
  - Atrial septal defect [Unknown]
  - Ventricular septal defect [Unknown]
  - Congenital heart valve disorder [Unknown]
  - Congenital aortic valve incompetence [Unknown]
  - Congenital aortic anomaly [Unknown]
  - Congenital aortic valve stenosis [Unknown]
  - Congenital pulmonary hypertension [Unknown]
  - Pulmonary valve incompetence [Unknown]
  - Cardiac failure congestive [Unknown]
  - Foetal exposure during pregnancy [Unknown]
